FAERS Safety Report 14670905 (Version 1)
Quarter: 2018Q1

REPORT INFORMATION
  Report Type: Spontaneous
  Country: US (occurrence: US)
  Receive Date: 20180321
  Receipt Date: 20180321
  Transmission Date: 20180509
  Serious: Yes (Other)
  Sender: FDA-Public Use
  Company Number: None

PATIENT
  Age: 76 Year
  Sex: Female
  Weight: 51.26 kg

DRUGS (9)
  1. GARLIC. [Concomitant]
     Active Substance: GARLIC
  2. B VITAMINS [Concomitant]
     Active Substance: CYANOCOBALAMIN\DEXPANTHENOL\NIACINAMIDE\PYRIDOXINE HYDROCHLORIDE\RIBOFLAVIN 5^-PHOSPHATE SODIUM\THIAMINE HYDROCHLORIDE\VITAMIN B COMPLEX
  3. ATENOLOL 25MG [Suspect]
     Active Substance: ATENOLOL
     Dosage: ?          QUANTITY:LQWT?ITS MY;?
     Route: 048
     Dates: start: 20180219, end: 20180228
  4. ATENOLOL. [Concomitant]
     Active Substance: ATENOLOL
  5. MAGNESIUM [Concomitant]
     Active Substance: MAGNESIUM
  6. ZINC. [Concomitant]
     Active Substance: ZINC
  7. VITAMIN D3 [Concomitant]
     Active Substance: CHOLECALCIFEROL
  8. NITRO [Concomitant]
     Active Substance: NITROGLYCERIN
  9. OMEGA 3 [Concomitant]
     Active Substance: OMEGA-3 FATTY ACIDS

REACTIONS (4)
  - Product substitution issue [None]
  - Heart rate irregular [None]
  - Heart rate increased [None]
  - Blood pressure increased [None]

NARRATIVE: CASE EVENT DATE: 20180228
